FAERS Safety Report 20131499 (Version 1)
Quarter: 2021Q4

REPORT INFORMATION
  Report Type: Spontaneous
  Country: CN (occurrence: CN)
  Receive Date: 20211130
  Receipt Date: 20211130
  Transmission Date: 20220303
  Serious: Yes (Other)
  Sender: FDA-Public Use
  Company Number: CN-PFIZER INC-202101619520

PATIENT
  Age: 43 Year
  Sex: Male
  Weight: 95 kg

DRUGS (4)
  1. CEFOPERAZONE SODIUM\SULBACTAM SODIUM [Suspect]
     Active Substance: CEFOPERAZONE SODIUM\SULBACTAM SODIUM
     Indication: Infection
     Dosage: 3 G, 2X/DAY
     Route: 041
     Dates: start: 20211021, end: 20211030
  2. TIGECYCLINE [Suspect]
     Active Substance: TIGECYCLINE
     Indication: Infection
     Dosage: 100 MG, 2X/DAY
     Route: 041
     Dates: start: 20211107, end: 20211109
  3. POLYMYXIN B SULFATE [Suspect]
     Active Substance: POLYMYXIN B SULFATE
     Indication: Infection
     Dosage: 250000 IU, 2X/DAY
     Route: 055
     Dates: start: 20211103, end: 20211109
  4. HEPARIN CALCIUM [Concomitant]
     Active Substance: HEPARIN CALCIUM
     Indication: Thrombosis prophylaxis
     Dosage: 4100 IU, 1X/DAY
     Route: 058
     Dates: start: 20211021, end: 20211117

REACTIONS (3)
  - Superinfection fungal [Recovering/Resolving]
  - Sepsis [Recovering/Resolving]
  - Full blood count abnormal [Unknown]

NARRATIVE: CASE EVENT DATE: 20211109
